FAERS Safety Report 13663029 (Version 1)
Quarter: 2017Q2

REPORT INFORMATION
  Report Type: Spontaneous
  Country: FR (occurrence: FR)
  Receive Date: 20170619
  Receipt Date: 20170619
  Transmission Date: 20170830
  Serious: Yes (Hospitalization)
  Sender: FDA-Public Use
  Company Number: FR-ROCHE-1949882

PATIENT
  Age: 76 Year
  Sex: Female

DRUGS (11)
  1. BISOPROLOL [Concomitant]
     Active Substance: BISOPROLOL
  2. BETAHISTINE [Concomitant]
     Active Substance: BETAHISTINE
  3. TAHOR [Concomitant]
     Active Substance: ATORVASTATIN CALCIUM
  4. PREVISCAN (FRANCE) [Interacting]
     Active Substance: FLUINDIONE
     Indication: CARDIAC OPERATION
     Route: 048
     Dates: end: 20170519
  5. LEVOTHYROX [Concomitant]
     Active Substance: LEVOTHYROXINE
  6. ALDACTONE [Concomitant]
     Active Substance: SPIRONOLACTONE
  7. ZOPICLONE [Concomitant]
     Active Substance: ZOPICLONE
  8. FLUINDIONE [Concomitant]
     Active Substance: FLUINDIONE
  9. ROCEPHINE [Suspect]
     Active Substance: CEFTRIAXONE SODIUM
     Indication: LUNG DISORDER
     Route: 048
     Dates: start: 20170518
  10. TAVANIC [Interacting]
     Active Substance: LEVOFLOXACIN
     Indication: LUNG DISORDER
     Route: 048
     Dates: start: 20170512, end: 20170518
  11. LASILIX [Concomitant]
     Active Substance: FUROSEMIDE

REACTIONS (3)
  - Haemoglobin decreased [Recovered/Resolved]
  - Drug interaction [Unknown]
  - Intra-abdominal haematoma [Recovered/Resolved]

NARRATIVE: CASE EVENT DATE: 20170519
